FAERS Safety Report 6941875-1 (Version None)
Quarter: 2010Q3

REPORT INFORMATION
  Report Type: 
  Country: None (occurrence: None)
  Receive Date: 20100826
  Receipt Date: 20100816
  Transmission Date: 20110219
  Serious: Yes (Other)
  Sender: FDA-Public Use
  Company Number: US-PFIZER INC-2010054546

PATIENT
  Sex: Female
  Weight: 81.6 kg

DRUGS (9)
  1. NEURONTIN [Suspect]
     Indication: PAIN IN EXTREMITY
     Dosage: 300 MG, 2X/DAY
     Route: 048
     Dates: start: 20100421
  2. VALIUM [Concomitant]
     Indication: ANXIETY
     Dosage: UNK, AS NEEDED
  3. ADDERALL 10 [Concomitant]
     Indication: DEPRESSION
     Dosage: 20 MG, 2X/DAY AS NEEDED
  4. RELPAX [Concomitant]
     Indication: MIGRAINE
     Dosage: 40 MG, 2X/DAY
  5. MOBIC [Concomitant]
     Indication: MUSCULOSKELETAL DISCOMFORT
     Dosage: 7.5 MG, DAILY
  6. LIDODERM [Concomitant]
     Indication: MUSCULOSKELETAL DISCOMFORT
     Dosage: UNK, DAILY
  7. AMBIEN [Concomitant]
     Indication: SLEEP DISORDER
     Dosage: 10 MG, UNK
  8. LANSOPRAZOLE [Concomitant]
     Indication: HYPERCHLORHYDRIA
     Dosage: 30 MG, DAILY
  9. PROMETHAZINE [Concomitant]
     Indication: NAUSEA
     Dosage: 25 MG, 2X/DAY

REACTIONS (3)
  - DIZZINESS [None]
  - HEADACHE [None]
  - VISION BLURRED [None]
